FAERS Safety Report 9221759 (Version 1)
Quarter: 2013Q1

REPORT INFORMATION
  Report Type: Spontaneous
  Country: US (occurrence: US)
  Receive Date: 20120904
  Receipt Date: 20120904
  Transmission Date: 20140127
  Serious: Yes (Other)
  Sender: FDA-Public Use
  Company Number: 2011029642

PATIENT
  Age: 24 Year
  Sex: Male

DRUGS (1)
  1. CARIMUNE NF [Suspect]
     Route: 042

REACTIONS (2)
  - Lyssavirus test positive [None]
  - Laboratory test interference [None]
